FAERS Safety Report 4287454-9 (Version None)
Quarter: 2004Q1

REPORT INFORMATION
  Report Type: 
  Country: None (occurrence: None)
  Receive Date: 20040209
  Receipt Date: 20030630
  Transmission Date: 20041129
  Serious: No
  Sender: FDA-Public Use
  Company Number: US-GLAXOSMITHKLINE-A0414394A

PATIENT
  Age: 68 Year
  Sex: Female
  Weight: 52.7 kg

DRUGS (2)
  1. PAXIL CR [Suspect]
     Route: 048
     Dates: start: 20030304
  2. NO CONCURRENT MEDICATIONS [Concomitant]

REACTIONS (4)
  - DIARRHOEA [None]
  - ELECTROLYTE IMBALANCE [None]
  - NAUSEA [None]
  - VOMITING [None]
